FAERS Safety Report 19758825 (Version 2)
Quarter: 2021Q3

REPORT INFORMATION
  Report Type: Report from Study
  Country: None (occurrence: US)
  Receive Date: 20210827
  Receipt Date: 20210910
  Transmission Date: 20211014
  Serious: No
  Sender: FDA-Public Use
  Company Number: US-ABBVIE-21K-163-4056306-00

PATIENT
  Age: 81 Year
  Sex: Female
  Weight: 63.56 kg

DRUGS (1)
  1. IMBRUVICA [Suspect]
     Active Substance: IBRUTINIB
     Indication: PRODUCT USED FOR UNKNOWN INDICATION
     Route: 048
     Dates: start: 202102

REACTIONS (1)
  - Neck mass [Recovering/Resolving]

NARRATIVE: CASE EVENT DATE: 20210826
